FAERS Safety Report 21489996 (Version 1)
Quarter: 2022Q4

REPORT INFORMATION
  Report Type: Spontaneous
  Country: JP (occurrence: JP)
  Receive Date: 20221021
  Receipt Date: 20221021
  Transmission Date: 20230113
  Serious: Yes (Death, Other)
  Sender: FDA-Public Use
  Company Number: JP-MACLEODS PHARMACEUTICALS US LTD-MAC2022037937

PATIENT

DRUGS (9)
  1. LEVOFLOXACIN [Suspect]
     Active Substance: LEVOFLOXACIN
     Indication: Tuberculosis
     Dosage: 250 MILLIGRAM, QOD
     Route: 065
  2. ISONIAZID [Suspect]
     Active Substance: ISONIAZID
     Indication: Tuberculosis
     Dosage: 200 MILLIGRAM, QD
     Route: 042
  3. LINEZOLID [Suspect]
     Active Substance: LINEZOLID
     Indication: Tuberculosis
     Dosage: 1200 MILLIGRAM, QD
     Route: 065
  4. STREPTOMYCIN [Suspect]
     Active Substance: STREPTOMYCIN SULFATE
     Indication: Tuberculosis
     Dosage: 300 MILLIGRAM; TWICE A WEEK
     Route: 030
  5. TEDIZOLID [Suspect]
     Active Substance: TEDIZOLID
     Indication: Tuberculosis
     Dosage: UNK
     Route: 042
  6. CEFAZOLIN [Concomitant]
     Active Substance: CEFAZOLIN
     Indication: Cellulitis
     Dosage: 1 GRAM, QD
     Route: 065
  7. MEROPENEM [Concomitant]
     Active Substance: MEROPENEM
     Indication: Cellulitis
     Dosage: 1 GRAM, QD
     Route: 065
  8. TEICOPLANIN [Concomitant]
     Active Substance: TEICOPLANIN
     Indication: Product used for unknown indication
     Dosage: 400 MILLIGRAM, QOD
     Route: 065
  9. MICAFUNGIN [Concomitant]
     Active Substance: MICAFUNGIN
     Indication: Product used for unknown indication
     Dosage: 150 MILLIGRAM, QD
     Route: 065

REACTIONS (6)
  - Chronic kidney disease [Fatal]
  - Dehydration [Fatal]
  - Arrhythmia [Fatal]
  - Cardio-respiratory arrest [Fatal]
  - Condition aggravated [Fatal]
  - Thrombocytopenia [Recovering/Resolving]
